FAERS Safety Report 24758335 (Version 1)
Quarter: 2024Q4

REPORT INFORMATION
  Report Type: Spontaneous
  Country: US (occurrence: US)
  Receive Date: 20241220
  Receipt Date: 20241220
  Transmission Date: 20250115
  Serious: Yes (Life-Threatening, Hospitalization)
  Sender: DR REDDYS
  Company Number: None

PATIENT
  Age: 28 Year
  Sex: Male

DRUGS (5)
  1. TESTOSTERONE [Suspect]
     Active Substance: TESTOSTERONE
     Indication: Product used for unknown indication
  2. LIOTHYRONINE [Suspect]
     Active Substance: LIOTHYRONINE
     Indication: Product used for unknown indication
  3. ANASTROZOLE [Suspect]
     Active Substance: ANASTROZOLE
     Indication: Product used for unknown indication
  4. CLOMIPHENE [Suspect]
     Active Substance: CLOMIPHENE
     Indication: Product used for unknown indication
  5. CLENBUTEROL [Suspect]
     Active Substance: CLENBUTEROL
     Indication: Product used for unknown indication

REACTIONS (8)
  - Acute respiratory failure [Recovering/Resolving]
  - Cardiogenic shock [Recovering/Resolving]
  - Cardiac valve fibroelastoma [Unknown]
  - Myocarditis [Unknown]
  - Hypothalamic pituitary adrenal axis suppression [Not Recovered/Not Resolved]
  - Prescription drug used without a prescription [Unknown]
  - Cardiac failure acute [Unknown]
  - Intentional product misuse [Unknown]
